FAERS Safety Report 24015087 (Version 2)
Quarter: 2024Q2

REPORT INFORMATION
  Report Type: Report from Study
  Country: BY (occurrence: BY)
  Receive Date: 20240626
  Receipt Date: 20240627
  Transmission Date: 20240716
  Serious: Yes (Death)
  Sender: FDA-Public Use
  Company Number: BY-MYLANLABS-2024M1057542

PATIENT
  Age: 66 Year
  Sex: Male
  Weight: 62 kg

DRUGS (10)
  1. PRETOMANID [Suspect]
     Active Substance: PRETOMANID
     Indication: Tuberculosis
     Dosage: 200 MILLIGRAM, QD
     Route: 048
     Dates: start: 20220929, end: 20230315
  2. BEDAQUILINE [Suspect]
     Active Substance: BEDAQUILINE
     Indication: Tuberculosis
     Dosage: 400 MILLIGRAM, QD (400 MG OD PO FOR 2 WEEKS, THEN 200 MG TIW PO)
     Route: 048
     Dates: start: 20220929, end: 20230315
  3. LINEZOLID [Suspect]
     Active Substance: LINEZOLID
     Indication: Tuberculosis
     Dosage: 600 MILLIGRAM, QD (FOR 16 WEEKS)
     Route: 048
     Dates: start: 20220929
  4. LINEZOLID [Suspect]
     Active Substance: LINEZOLID
     Dosage: 300 MILLIGRAM, QD
     Route: 065
     Dates: end: 20230315
  5. LAMPRENE [Suspect]
     Active Substance: CLOFAZIMINE
     Indication: Tuberculosis
     Dosage: 100 MILLIGRAM, QD
     Route: 048
     Dates: start: 20220929, end: 20230315
  6. METOPROLOL [Concomitant]
     Active Substance: METOPROLOL
     Indication: Cardiac disorder
     Dosage: 50 MILLIGRAM, BID
     Route: 065
     Dates: start: 20220922, end: 20230315
  7. PERINDOPRIL [Concomitant]
     Active Substance: PERINDOPRIL
     Indication: Cardiac disorder
     Dosage: 4 MILLIGRAM, QD (4 MG IN THE MORNING)
     Route: 065
     Dates: start: 20220922, end: 20230315
  8. ATORVASTATIN [Concomitant]
     Active Substance: ATORVASTATIN
     Indication: Cardiac disorder
     Dosage: 20 MILLIGRAM, QD (20 MG AT NIGHT)
     Route: 065
     Dates: start: 20220922, end: 20230315
  9. ASPICARD [Concomitant]
     Indication: Cardiac disorder
     Dosage: 75 MILLIGRAM, QD (75 MG AT LUNCH)
     Route: 065
     Dates: start: 20220922, end: 20230315
  10. SPIRONOLACTONE [Concomitant]
     Active Substance: SPIRONOLACTONE
     Indication: Cardiac disorder
     Dosage: 50 MILLIGRAM, QD (50 MG AT 12.00)
     Route: 065
     Dates: start: 20220922, end: 20230315

REACTIONS (1)
  - Acute left ventricular failure [Fatal]

NARRATIVE: CASE EVENT DATE: 20230321
